FAERS Safety Report 9616962 (Version 2)
Quarter: 2013Q4

REPORT INFORMATION
  Report Type: Spontaneous
  Country: PT (occurrence: PT)
  Receive Date: 20131011
  Receipt Date: 20131022
  Transmission Date: 20140711
  Serious: Yes (Hospitalization)
  Sender: FDA-Public Use
  Company Number: PT-SA-2013SA099325

PATIENT
  Age: 74 Year
  Sex: Female
  Weight: 88 kg

DRUGS (6)
  1. CEREZYME [Suspect]
     Indication: GAUCHER^S DISEASE
     Dosage: DOSE:35 UNIT(S)/KILOGRAM BODYWEIGHT
     Route: 042
  2. ACETYLSALICYLIC ACID [Concomitant]
  3. VALSARTAN/HYDROCHLOROTHIAZIDE [Concomitant]
     Indication: HYPERTENSION
  4. LEVODOPA-CARBIDOPA [Concomitant]
     Indication: PARKINSON^S DISEASE
  5. AMLODIPINE [Concomitant]
  6. RIVASTIGMINE [Concomitant]

REACTIONS (2)
  - Nodal arrhythmia [Recovered/Resolved]
  - Syncope [Recovered/Resolved]
